FAERS Safety Report 20318254 (Version 3)
Quarter: 2023Q2

REPORT INFORMATION
  Report Type: Report from Study
  Country: DE (occurrence: DE)
  Receive Date: 20220110
  Receipt Date: 20230628
  Transmission Date: 20230721
  Serious: Yes (Life-Threatening, Hospitalization, Other)
  Sender: FDA-Public Use
  Company Number: DE-TAKEDA-DE201814779

PATIENT
  Age: 24 Year
  Sex: Male
  Weight: 73 kg

DRUGS (8)
  1. TEDUGLUTIDE [Suspect]
     Active Substance: TEDUGLUTIDE
     Indication: Short-bowel syndrome
     Dosage: 3.6 MG, (0.05 MG KG AND 7 DOSES PER WEEK)
     Route: 042
     Dates: start: 20150724, end: 20171119
  2. TEDUGLUTIDE [Suspect]
     Active Substance: TEDUGLUTIDE
     Indication: Short-bowel syndrome
     Dosage: 3.6 MG, (0.05 MG KG AND 7 DOSES PER WEEK)
     Route: 042
     Dates: start: 20150724, end: 20171119
  3. TEDUGLUTIDE [Suspect]
     Active Substance: TEDUGLUTIDE
     Indication: Short-bowel syndrome
     Dosage: 3.6 MG, (0.05 MG KG AND 7 DOSES PER WEEK)
     Route: 042
     Dates: start: 20150724, end: 20171119
  4. TEDUGLUTIDE [Suspect]
     Active Substance: TEDUGLUTIDE
     Indication: Short-bowel syndrome
     Dosage: 3.6 MG, (0.05 MG KG AND 7 DOSES PER WEEK)
     Route: 042
     Dates: start: 20150724, end: 20171119
  5. TAZOBACTAM [Concomitant]
     Active Substance: TAZOBACTAM
     Indication: Device related infection
     Dosage: 999 UNK
     Route: 065
     Dates: start: 20170629, end: 20170706
  6. Selenase [Concomitant]
     Indication: Supplementation therapy
     Dosage: 100 MICROGRAM, QD
     Route: 048
     Dates: start: 20160106, end: 20161221
  7. ZINKAMIN [Concomitant]
     Indication: Mineral supplementation
     Dosage: 94 MILLIGRAM, QD
     Route: 048
     Dates: start: 20160106
  8. COLESEVELAM HYDROCHLORIDE [Concomitant]
     Active Substance: COLESEVELAM HYDROCHLORIDE
     Indication: Diarrhoea
     Dosage: 1250 MILLIGRAM, TID
     Route: 048
     Dates: start: 20150422

REACTIONS (1)
  - Complications of intestinal transplant [Not Recovered/Not Resolved]

NARRATIVE: CASE EVENT DATE: 20171120
